FAERS Safety Report 6496525-8 (Version None)
Quarter: 2009Q4

REPORT INFORMATION
  Report Type: 
  Country: None (occurrence: None)
  Receive Date: 20091214
  Receipt Date: 20091202
  Transmission Date: 20100525
  Serious: Yes (Hospitalization)
  Sender: FDA-Public Use
  Company Number: CA-SANOFI-AVENTIS-A01200909712

PATIENT
  Age: 67 Year
  Sex: Male
  Weight: 95.7 kg

DRUGS (9)
  1. OXALIPLATIN [Suspect]
     Indication: COLORECTAL CANCER
     Route: 041
     Dates: start: 20090826, end: 20090826
  2. GLYBURIDE [Concomitant]
     Route: 048
  3. METFORMIN [Concomitant]
     Route: 048
  4. COZAAR [Concomitant]
     Route: 048
  5. LOPRESSOR [Concomitant]
     Route: 048
  6. VITAMIN B-12 [Concomitant]
     Route: 048
  7. ASPIRIN [Concomitant]
     Route: 048
  8. FUROSEMIDE [Concomitant]
     Route: 048
  9. IRON [Concomitant]
     Route: 048

REACTIONS (2)
  - ATRIAL FIBRILLATION [None]
  - PYREXIA [None]
